FAERS Safety Report 14468133 (Version 1)
Quarter: 2018Q1

REPORT INFORMATION
  Report Type: Spontaneous
  Country: US (occurrence: US)
  Receive Date: 20180131
  Receipt Date: 20180131
  Transmission Date: 20180509
  Serious: No
  Sender: FDA-Public Use
  Company Number: US-TEVA-759336USA

PATIENT
  Age: 48 Year
  Sex: Female

DRUGS (1)
  1. NORETHINDRONE W/ETHINYLESTRADIOL [Suspect]
     Active Substance: ETHINYL ESTRADIOL\NORETHINDRONE
     Indication: MENSTRUAL DISORDER
     Dosage: 1/35 1MG 35MCG

REACTIONS (2)
  - Drug dose omission [Unknown]
  - Vaginal haemorrhage [Unknown]
